FAERS Safety Report 16082378 (Version 3)
Quarter: 2019Q3

REPORT INFORMATION
  Report Type: Report from Study
  Country: None (occurrence: CO)
  Receive Date: 20190318
  Receipt Date: 20190921
  Transmission Date: 20191004
  Serious: Yes (Hospitalization, Other)
  Sender: FDA-Public Use
  Company Number: CO-ABBVIE-18K-036-2533286-00

PATIENT
  Sex: Female
  Weight: 69 kg

DRUGS (6)
  1. CODEINE [Concomitant]
     Active Substance: CODEINE
     Indication: PRODUCT USED FOR UNKNOWN INDICATION
  2. HUMIRA [Suspect]
     Active Substance: ADALIMUMAB
     Indication: RHEUMATOID ARTHRITIS
     Route: 058
  3. ESOMEPRAZOLE. [Concomitant]
     Active Substance: ESOMEPRAZOLE MAGNESIUM
     Indication: PRODUCT USED FOR UNKNOWN INDICATION
  4. LOVASTATIN. [Concomitant]
     Active Substance: LOVASTATIN
     Indication: PRODUCT USED FOR UNKNOWN INDICATION
  5. PARACETAMOL [Concomitant]
     Active Substance: ACETAMINOPHEN
     Indication: PRODUCT USED FOR UNKNOWN INDICATION
  6. ALUMINIUM HYDROXIDE [Concomitant]
     Active Substance: ALUMINUM HYDROXIDE
     Indication: PRODUCT USED FOR UNKNOWN INDICATION

REACTIONS (27)
  - Ovarian disorder [Recovering/Resolving]
  - Spinal stenosis [Recovering/Resolving]
  - Cystocele [Unknown]
  - Arthritis [Recovering/Resolving]
  - Vaginal haemorrhage [Recovering/Resolving]
  - Arthralgia [Recovering/Resolving]
  - Nuclear magnetic resonance imaging abnormal [Unknown]
  - Dizziness [Recovering/Resolving]
  - Bone loss [Unknown]
  - Uterine leiomyoma [Recovering/Resolving]
  - Rhinitis allergic [Recovering/Resolving]
  - Blood triglycerides increased [Recovering/Resolving]
  - Dry eye [Recovering/Resolving]
  - Arthralgia [Recovered/Resolved]
  - Scoliosis [Recovering/Resolving]
  - Inflammation [Recovering/Resolving]
  - Pain in extremity [Recovering/Resolving]
  - Blindness transient [Recovering/Resolving]
  - Blood potassium decreased [Recovering/Resolving]
  - Headache [Recovering/Resolving]
  - Glaucoma [Recovering/Resolving]
  - Excessive cerumen production [Recovering/Resolving]
  - Weight increased [Unknown]
  - Diarrhoea [Recovering/Resolving]
  - Blood cholesterol increased [Recovering/Resolving]
  - Scleritis [Recovering/Resolving]
  - Colitis [Recovering/Resolving]

NARRATIVE: CASE EVENT DATE: 2011
